FAERS Safety Report 6521455-2 (Version None)
Quarter: 2009Q4

REPORT INFORMATION
  Report Type: 
  Country: None (occurrence: None)
  Receive Date: 20091230
  Receipt Date: 20091222
  Transmission Date: 20100525
  Serious: Yes (Other)
  Sender: FDA-Public Use
  Company Number: FR-ROCHE-676287

PATIENT
  Age: 10 Year
  Sex: Female
  Weight: 25 kg

DRUGS (3)
  1. TAMIFLU [Suspect]
     Route: 048
     Dates: start: 20091211, end: 20091212
  2. DOLIPRANE [Concomitant]
  3. ADVIL [Concomitant]

REACTIONS (1)
  - HALLUCINATION, AUDITORY [None]
